FAERS Safety Report 26012085 (Version 1)
Quarter: 2025Q4

REPORT INFORMATION
  Report Type: Report from Study
  Country: EU (occurrence: EU)
  Receive Date: 20251107
  Receipt Date: 20251107
  Transmission Date: 20260118
  Serious: Yes (Other)
  Sender: ROCHE
  Company Number: EU-ROCHE-10000420284

PATIENT

DRUGS (5)
  1. TOCILIZUMAB [Suspect]
     Active Substance: TOCILIZUMAB
     Indication: Birdshot chorioretinopathy
     Route: 058
  2. MYCOPHENOLATE MOFETIL [Suspect]
     Active Substance: MYCOPHENOLATE MOFETIL
     Indication: Birdshot chorioretinopathy
     Route: 058
  3. METHOTREXATE [Suspect]
     Active Substance: METHOTREXATE
     Indication: Birdshot chorioretinopathy
     Route: 058
  4. AZATHIOPRINE [Suspect]
     Active Substance: AZATHIOPRINE
     Indication: Birdshot chorioretinopathy
     Route: 058
  5. CYCLOSPORINE [Suspect]
     Active Substance: CYCLOSPORINE
     Indication: Birdshot chorioretinopathy
     Route: 058

REACTIONS (28)
  - Renal failure [Unknown]
  - Malignant hypertension [Unknown]
  - Neuropathy peripheral [Unknown]
  - Pneumocystis jirovecii pneumonia [Unknown]
  - Diverticulitis intestinal perforated [Unknown]
  - Lupus-like syndrome [Unknown]
  - Pneumonia [Unknown]
  - Candida infection [Unknown]
  - Oral herpes [Unknown]
  - Hypertension [Unknown]
  - Skin fragility [Unknown]
  - Hypertrichosis [Unknown]
  - Headache [Unknown]
  - Asthenia [Unknown]
  - Arthralgia [Unknown]
  - Myalgia [Unknown]
  - Gingival hypertrophy [Unknown]
  - Gastrointestinal disorder [Unknown]
  - Alcohol intolerance [Unknown]
  - Leukopenia [Unknown]
  - Anaemia [Unknown]
  - Hepatic cytolysis [Unknown]
  - Lipase increased [Unknown]
  - Hypogammaglobulinaemia [Unknown]
  - Paraesthesia [Unknown]
  - Insomnia [Unknown]
  - Tremor [Unknown]
  - Depression [Unknown]
